FAERS Safety Report 25355285 (Version 1)
Quarter: 2025Q2

REPORT INFORMATION
  Report Type: Spontaneous
  Country: KR (occurrence: KR)
  Receive Date: 20250524
  Receipt Date: 20250524
  Transmission Date: 20250716
  Serious: Yes (Death, Hospitalization, Other)
  Sender: AMGEN
  Company Number: KR-AMGEN-KORSP2025098156

PATIENT
  Age: 55 Year
  Sex: Female

DRUGS (9)
  1. ROMIPLOSTIM [Suspect]
     Active Substance: ROMIPLOSTIM
     Indication: Immune thrombocytopenia
     Dosage: 1 MICROGRAM/KILOGRAM, QWK
     Route: 065
  2. ROMIPLOSTIM [Suspect]
     Active Substance: ROMIPLOSTIM
     Dosage: 8 MICROGRAM/KILOGRAM, QWK
     Route: 065
  3. Immunoglobulin [Concomitant]
     Route: 040
  4. AZATHIOPRINE [Concomitant]
     Active Substance: AZATHIOPRINE
  5. DANAZOL [Concomitant]
     Active Substance: DANAZOL
  6. RITUXIMAB [Concomitant]
     Active Substance: RITUXIMAB
     Dosage: 375 MILLIGRAM/SQ. METER, QWK, FOR FOUR WEEKS
  7. ELTROMBOPAG [Concomitant]
     Active Substance: ELTROMBOPAG
  8. HYDROXYCHLOROQUINE [Concomitant]
     Active Substance: HYDROXYCHLOROQUINE
  9. PREDNISONE [Concomitant]
     Active Substance: PREDNISONE

REACTIONS (12)
  - Cardiac arrest [Fatal]
  - Antiphospholipid syndrome [Fatal]
  - Thrombotic microangiopathy [Unknown]
  - Proteinuria [Unknown]
  - Hepatitis [Unknown]
  - Adrenal haemorrhage [Unknown]
  - Embolic cerebral infarction [Unknown]
  - Ejection fraction decreased [Unknown]
  - Bullous haemorrhagic dermatosis [Unknown]
  - End stage renal disease [Unknown]
  - Ventricular hypokinesia [Unknown]
  - Therapy partial responder [Unknown]
